FAERS Safety Report 7819620-7 (Version None)
Quarter: 2011Q4

REPORT INFORMATION
  Report Type: 
  Country: None (occurrence: None)
  Receive Date: 20111018
  Receipt Date: 20111018
  Transmission Date: 20120403
  Serious: Yes (Life-Threatening, Hospitalization, Disabling)
  Sender: FDA-Public Use
  Company Number: None

PATIENT
  Sex: Female
  Weight: 90.264 kg

DRUGS (1)
  1. NUVARING [Suspect]
     Indication: DYSFUNCTIONAL UTERINE BLEEDING
     Route: 067
     Dates: start: 20090601, end: 20110722

REACTIONS (2)
  - ACUTE MYOCARDIAL INFARCTION [None]
  - CARDIAC ARREST [None]
